FAERS Safety Report 9718526 (Version 1)
Quarter: 2013Q4

REPORT INFORMATION
  Report Type: Not Available
  Country: US (occurrence: US)
  Receive Date: 20131125
  Receipt Date: 20131125
  Transmission Date: 20140711
  Serious: No
  Sender: FDA-Public Use
  Company Number: US-VIVUS-2013V1000690

PATIENT
  Age: 75 Year
  Sex: Female
  Weight: 63.56 kg

DRUGS (4)
  1. QSYMIA 7.5MG/46MG [Suspect]
     Indication: PRODUCT USED FOR UNKNOWN INDICATION
     Route: 048
     Dates: start: 20130906, end: 20130908
  2. QSYMIA 3.75MG/23MG [Suspect]
     Indication: PRODUCT USED FOR UNKNOWN INDICATION
     Route: 048
     Dates: start: 20130823, end: 20130905
  3. LIPITOR [Concomitant]
     Indication: BLOOD CHOLESTEROL
     Dosage: LOWEST DOSE, STARTED FEW YEARS AGO
     Route: 048
  4. BENICAR [Concomitant]
     Indication: BLOOD PRESSURE
     Dosage: STARTED FEW YEARS AGO
     Route: 048

REACTIONS (2)
  - Dizziness [Recovering/Resolving]
  - Constipation [Not Recovered/Not Resolved]
